FAERS Safety Report 4482215-X (Version None)
Quarter: 2004Q4

REPORT INFORMATION
  Report Type: 
  Country: None (occurrence: None)
  Receive Date: 20041019
  Receipt Date: 20041019
  Transmission Date: 20050328
  Serious: Yes (Hospitalization)
  Sender: FDA-Public Use
  Company Number: None

PATIENT
  Sex: Male

DRUGS (11)
  1. METHADONE HCL [Suspect]
     Dosage: 91MG DAILY ORAL
     Route: 048
  2. WARFARIN SODIUM [Concomitant]
  3. ASPIRIN [Concomitant]
  4. CITALOPRAM [Concomitant]
  5. ENOXAPARIN SODIUM [Concomitant]
  6. FELODIPINE [Concomitant]
  7. INSULIN [Concomitant]
  8. ITRACONAZOLE [Concomitant]
  9. METOPROLOL SUCCINATE [Concomitant]
  10. RANITIDINE [Concomitant]
  11. TEMAZEPAM [Concomitant]

REACTIONS (2)
  - SOMNOLENCE [None]
  - TREATMENT NONCOMPLIANCE [None]
